FAERS Safety Report 8389165-7 (Version None)
Quarter: 2012Q2

REPORT INFORMATION
  Report Type: 
  Country: None (occurrence: None)
  Receive Date: 20120528
  Receipt Date: 20120525
  Transmission Date: 20120825
  Serious: Yes (Death)
  Sender: FDA-Public Use
  Company Number: PHHY2012NL000513

PATIENT
  Sex: Female

DRUGS (7)
  1. DIAZEPAM [Concomitant]
  2. ZOMETA [Suspect]
     Dosage: 4 MG IN 100 ML SOLUTION FOR INFUSION PER 28 DAYS
     Route: 042
     Dates: start: 20111214
  3. ACETAMINOPHEN [Concomitant]
  4. X-PRAEP [Concomitant]
  5. ZOMETA [Suspect]
     Indication: LUNG CANCER METASTATIC
     Dosage: 4 MG IN 100 ML SOLUTION FOR INFUSION PER 28 DAYS
     Route: 042
     Dates: start: 20111202
  6. FENTANYL-100 [Concomitant]
     Dosage: 25 MG, UNK
  7. DICLOFENAC [Concomitant]

REACTIONS (3)
  - HAEMOGLOBIN DECREASED [None]
  - DEATH [None]
  - PAIN [None]
